FAERS Safety Report 6999219-5 (Version None)
Quarter: 2010Q3

REPORT INFORMATION
  Report Type: 
  Country: None (occurrence: None)
  Receive Date: 20100920
  Receipt Date: 20091210
  Transmission Date: 20110219
  Serious: Yes (Other)
  Sender: FDA-Public Use
  Company Number: US-ASTRAZENECA-2007UW14885

PATIENT
  Age: 8405 Day
  Sex: Female
  Weight: 158.8 kg

DRUGS (20)
  1. SEROQUEL [Suspect]
     Indication: SLEEP DISORDER
     Route: 048
     Dates: start: 20050301, end: 20050601
  2. SEROQUEL [Suspect]
     Dosage: 25 TO 100 MG
     Route: 048
     Dates: start: 20050422
  3. ABILIFY [Concomitant]
     Indication: PSYCHOTIC DISORDER
     Dates: start: 20050711, end: 20080111
  4. ABILIFY [Concomitant]
     Dates: start: 20060512
  5. HALDOL [Concomitant]
  6. EFFEXOR XR [Concomitant]
     Dates: start: 20050407
  7. LORAZEPAM [Concomitant]
     Dates: start: 20050422
  8. ZOLOFT [Concomitant]
     Dates: start: 20050422
  9. TOPROL-XL [Concomitant]
     Dates: start: 20050407
  10. TOPROL-XL [Concomitant]
     Route: 048
     Dates: start: 20050422
  11. HYDROXYZINE PAM [Concomitant]
     Dates: start: 20060213
  12. CLORAZEPATE DICOT [Concomitant]
     Dates: start: 20050422
  13. FAMOTIDINE [Concomitant]
     Dates: start: 20050422
  14. GEODON [Concomitant]
     Dates: start: 20060324
  15. METFORMIN HCL [Concomitant]
     Dates: start: 20060213
  16. HALOPERIDOL [Concomitant]
     Dates: start: 20060213
  17. COGENTIN [Concomitant]
     Dates: start: 20060512
  18. KLONOPIN [Concomitant]
     Dates: start: 20050407
  19. TRANXENE [Concomitant]
     Dates: start: 20050407
  20. PEPCID [Concomitant]
     Dates: start: 20050407

REACTIONS (6)
  - DIABETES MELLITUS [None]
  - DIABETES MELLITUS INADEQUATE CONTROL [None]
  - EYE DISORDER [None]
  - HYPERGLYCAEMIA [None]
  - TYPE 2 DIABETES MELLITUS [None]
  - WEIGHT INCREASED [None]
